FAERS Safety Report 7024348-X (Version None)
Quarter: 2010Q3

REPORT INFORMATION
  Report Type: 
  Country: None (occurrence: None)
  Receive Date: 20100929
  Receipt Date: 20100911
  Transmission Date: 20110219
  Serious: Yes (Hospitalization)
  Sender: FDA-Public Use
  Company Number: WAES 1009USA04514

PATIENT
  Age: 67 Year
  Sex: Female
  Weight: 63.05 kg

DRUGS (19)
  1. DECADRON [Suspect]
     Indication: METASTASES TO CENTRAL NERVOUS SYSTEM
     Dosage: PO
  2. BLINDED THERAPY [Suspect]
     Indication: PROPHYLAXIS
     Dosage: PO
     Route: 048
     Dates: start: 20100723
  3. THERAPEUTIC RADIOPHARMACEUTICAL (UNSPECIFIED) [Suspect]
     Dates: start: 20100721, end: 20100812
  4. NEURONTIN [Suspect]
     Indication: MYOSITIS
     Dosage: 900 MG/TID
  5. NEURONTIN [Suspect]
     Indication: RADIATION ASSOCIATED PAIN
     Dosage: 900 MG/TID
  6. MS CONTIN [Suspect]
     Indication: MYOSITIS
     Dosage: 30 MG/TID
     Dates: end: 20100725
  7. MS CONTIN [Suspect]
     Indication: RADIATION ASSOCIATED PAIN
     Dosage: 30 MG/TID
     Dates: end: 20100725
  8. OXYCODONE HCL [Suspect]
     Indication: MYOSITIS
     Dosage: 5 TO 10 MG Q2H MG/PRN/PO
     Route: 048
     Dates: start: 20080101
  9. OXYCODONE HCL [Suspect]
     Indication: RADIATION ASSOCIATED PAIN
     Dosage: 5 TO 10 MG Q2H MG/PRN/PO
     Route: 048
     Dates: start: 20080101
  10. FOSAMAX [Concomitant]
  11. K-DUR [Concomitant]
  12. SYNTHROID [Concomitant]
  13. VICODIN [Concomitant]
  14. ASCORBIC ACID [Concomitant]
  15. ERGOCALCIFEROL [Concomitant]
  16. FOLIC ACID [Concomitant]
  17. GARLIC [Concomitant]
  18. VITAMIN E [Concomitant]
  19. VITAMINS (UNSPECIFIED) [Concomitant]

REACTIONS (28)
  - ABASIA [None]
  - ADRENAL INSUFFICIENCY [None]
  - AGITATION [None]
  - ANAEMIA MACROCYTIC [None]
  - APHASIA [None]
  - BLOOD CALCIUM INCREASED [None]
  - BRAIN INJURY [None]
  - CONFUSIONAL STATE [None]
  - DEHYDRATION [None]
  - DELIRIUM [None]
  - DISORIENTATION [None]
  - DYSSTASIA [None]
  - ENCEPHALOPATHY [None]
  - FALL [None]
  - GAIT DISTURBANCE [None]
  - HYPOPHAGIA [None]
  - HYPOTENSION [None]
  - MUSCLE TWITCHING [None]
  - MUSCULAR WEAKNESS [None]
  - MYELODYSPLASTIC SYNDROME [None]
  - NERVOUSNESS [None]
  - NEUROTOXICITY [None]
  - NYSTAGMUS [None]
  - RADIATION INJURY [None]
  - SINUS ARRHYTHMIA [None]
  - SINUS BRADYCARDIA [None]
  - SOMNOLENCE [None]
  - THINKING ABNORMAL [None]
